APPROVED DRUG PRODUCT: FAMOTIDINE
Active Ingredient: FAMOTIDINE
Strength: 10MG
Dosage Form/Route: TABLET;ORAL
Application: A075404 | Product #001
Applicant: WATSON LABORATORIES INC
Approved: Nov 28, 2001 | RLD: No | RS: No | Type: DISCN